FAERS Safety Report 4952904-9 (Version None)
Quarter: 2006Q1

REPORT INFORMATION
  Report Type: 
  Country: None (occurrence: None)
  Receive Date: 20060324
  Receipt Date: 20060315
  Transmission Date: 20060701
  Serious: Yes (Hospitalization)
  Sender: FDA-Public Use
  Company Number: US-JNJFOC-20060303949

PATIENT
  Sex: Female

DRUGS (4)
  1. INFLIXIMAB [Suspect]
     Dosage: 3 INFUSIONS
     Route: 042
  2. INFLIXIMAB [Suspect]
     Dosage: 3 INFUSIONS
     Route: 042
  3. INFLIXIMAB [Suspect]
     Dosage: 3 INFUSIONS
     Route: 042
  4. METHOTREXATE [Suspect]
     Indication: DRUG USE FOR UNKNOWN INDICATION

REACTIONS (4)
  - ARTHRALGIA [None]
  - BACK PAIN [None]
  - LYMPH NODE TUBERCULOSIS [None]
  - TUBERCULOSIS [None]
